FAERS Safety Report 8767886 (Version 2)
Quarter: 2012Q4

REPORT INFORMATION
  Report Type: 
  Country: JP (occurrence: JP)
  Receive Date: 20120904
  Receipt Date: 20121108
  Transmission Date: 20130627
  Serious: Yes (Other)
  Sender: FDA-Public Use
  Company Number: PHHY2012JP074956

PATIENT
  Age: 89 Year
  Sex: Male

DRUGS (4)
  1. CEFEPIME [Suspect]
     Indication: OSTEOMYELITIS
     Dosage: 1 g/day
  2. CLINDAMYCIN [Concomitant]
     Dosage: 600 mg, TID
  3. CIPLOXACIN [Concomitant]
  4. AMPICILLIN + SULBACTAM [Concomitant]

REACTIONS (9)
  - Encephalopathy [Recovered/Resolved]
  - Altered state of consciousness [Unknown]
  - Dyskinesia [Recovered/Resolved]
  - Renal failure acute [Recovered/Resolved]
  - Renal impairment [Recovered/Resolved]
  - Anaemia [Recovered/Resolved]
  - Thrombocytopenia [Recovered/Resolved]
  - Jaundice [Recovered/Resolved]
  - Pyrexia [Recovered/Resolved]
